FAERS Safety Report 17045214 (Version 1)
Quarter: 2019Q4

REPORT INFORMATION
  Report Type: Report from Study
  Country: CA (occurrence: CA)
  Receive Date: 20191118
  Receipt Date: 20191118
  Transmission Date: 20200122
  Serious: Yes (Hospitalization)
  Sender: FDA-Public Use
  Company Number: PHHY2019CA190623

PATIENT
  Age: 64 Year
  Sex: Female
  Weight: 51.25 kg

DRUGS (3)
  1. OCTREOTIDE. [Concomitant]
     Active Substance: OCTREOTIDE
     Indication: PRODUCT USED FOR UNKNOWN INDICATION
     Dosage: UNK
     Route: 058
     Dates: start: 2018
  2. DIAZIDE [Concomitant]
     Indication: PRODUCT USED FOR UNKNOWN INDICATION
     Dosage: UNK
     Route: 065
  3. SANDOSTATIN LAR DEPOT [Suspect]
     Active Substance: OCTREOTIDE ACETATE
     Indication: CARCINOID TUMOUR
     Dosage: 10 MG, QMO
     Route: 030
     Dates: start: 20190614

REACTIONS (4)
  - Blood glucose increased [Unknown]
  - Abdominal pain [Unknown]
  - Blood pressure systolic increased [Unknown]
  - Colitis [Unknown]

NARRATIVE: CASE EVENT DATE: 20190712
